FAERS Safety Report 6728422-4 (Version None)
Quarter: 2010Q2

REPORT INFORMATION
  Report Type: 
  Country: None (occurrence: None)
  Receive Date: 20100517
  Receipt Date: 20100504
  Transmission Date: 20101027
  Serious: Yes (Hospitalization, Other)
  Sender: FDA-Public Use
  Company Number: US-ELI_LILLY_AND_COMPANY-US201005002819

PATIENT
  Sex: Female

DRUGS (3)
  1. FORTEO [Suspect]
     Indication: BONE DISORDER
     Dates: start: 20090101
  2. FORTEO [Suspect]
     Dates: start: 20090101
  3. OXYGEN [Concomitant]

REACTIONS (3)
  - ERYTHROPOIESIS ABNORMAL [None]
  - HEPATIC CIRRHOSIS [None]
  - INJECTION SITE PAIN [None]
